FAERS Safety Report 11056688 (Version 2)
Quarter: 2015Q2

REPORT INFORMATION
  Report Type: Spontaneous
  Country: US (occurrence: US)
  Receive Date: 20150422
  Receipt Date: 20150524
  Transmission Date: 20150821
  Serious: No
  Sender: FDA-Public Use
  Company Number: US-JNJFOC-20131104432

PATIENT
  Age: 62 Year
  Sex: Female
  Weight: 78.02 kg

DRUGS (18)
  1. ONGLYZA [Concomitant]
     Active Substance: SAXAGLIPTIN HYDROCHLORIDE
     Indication: DIABETES MELLITUS
     Route: 048
     Dates: start: 2010
  2. COZAAR [Concomitant]
     Active Substance: LOSARTAN POTASSIUM
     Indication: HYPERTENSION
     Route: 048
  3. DOXEPIN [Concomitant]
     Active Substance: DOXEPIN
     Indication: PAIN
     Route: 048
  4. CINNAMON. [Concomitant]
     Active Substance: CINNAMON
     Indication: DIABETES MELLITUS
     Route: 048
     Dates: start: 2012
  5. ZYRTEC [Concomitant]
     Active Substance: CETIRIZINE HYDROCHLORIDE
     Indication: SINUS DISORDER
  6. MINERALS NOS [Concomitant]
     Active Substance: MINERALS
  7. TIAZAC [Concomitant]
     Active Substance: DILTIAZEM HYDROCHLORIDE
     Indication: PALPITATIONS
     Route: 048
  8. TIAZAC [Concomitant]
     Active Substance: DILTIAZEM HYDROCHLORIDE
     Indication: HYPERTENSION
     Route: 048
  9. DOXEPIN [Concomitant]
     Active Substance: DOXEPIN
     Indication: SLEEP DISORDER THERAPY
     Route: 048
  10. MULTIVITAMINS [Concomitant]
     Active Substance: VITAMINS
     Route: 048
  11. CRANBERRY PILL [Concomitant]
     Route: 048
     Dates: start: 2013
  12. VITAMIN C [Concomitant]
     Active Substance: ASCORBIC ACID
     Route: 048
  13. IBUPROFEN. [Concomitant]
     Active Substance: IBUPROFEN
     Indication: PAIN
  14. INVOKANA [Suspect]
     Active Substance: CANAGLIFLOZIN
     Indication: DIABETES MELLITUS
     Route: 048
     Dates: start: 201305
  15. INVOKANA [Suspect]
     Active Substance: CANAGLIFLOZIN
     Indication: DIABETES MELLITUS
     Route: 048
  16. INVOKANA [Suspect]
     Active Substance: CANAGLIFLOZIN
     Indication: DIABETES MELLITUS
     Route: 048
  17. B VITAMIN COMPLEX [Concomitant]
     Route: 048
  18. CALCIUM MAGNESIUM ZINC [Concomitant]
     Active Substance: CALCIUM\MAGNESIUM\ZINC
     Route: 048

REACTIONS (5)
  - Off label use [Unknown]
  - Vulvovaginal pruritus [Recovering/Resolving]
  - Vulvovaginal mycotic infection [Recovering/Resolving]
  - Wrong technique in drug usage process [Unknown]
  - Incorrect dose administered [Unknown]

NARRATIVE: CASE EVENT DATE: 20131009
